FAERS Safety Report 22898776 (Version 3)
Quarter: 2023Q4

REPORT INFORMATION
  Report Type: Spontaneous
  Country: US (occurrence: US)
  Receive Date: 20230904
  Receipt Date: 20231123
  Transmission Date: 20240110
  Serious: No
  Sender: FDA-Public Use
  Company Number: US-SA-SAC20230829000363

PATIENT
  Age: 71 Year
  Sex: Female
  Weight: 56.69 kg

DRUGS (12)
  1. DUPIXENT [Suspect]
     Active Substance: DUPILUMAB
     Indication: Dermatitis atopic
     Dosage: 300 MG, QOW
     Route: 058
     Dates: start: 20230829
  2. BETAMETHASONE DIPROPIONATE [Concomitant]
     Active Substance: BETAMETHASONE DIPROPIONATE
     Dosage: UNK
  3. ASPIRIN [Concomitant]
     Active Substance: ASPIRIN
     Dosage: UNK
  4. METAMUCIL THERAPY FOR REGULARITY [Concomitant]
     Active Substance: PSYLLIUM HUSK
     Dosage: UNK
  5. PATADAY ONCE DAILY RELIEF [Concomitant]
     Active Substance: OLOPATADINE HYDROCHLORIDE
     Dosage: UNK
  6. ZYRTEC [Concomitant]
     Active Substance: CETIRIZINE HYDROCHLORIDE
     Dosage: UNK
  7. SINGULAIR [Concomitant]
     Active Substance: MONTELUKAST SODIUM
     Dosage: UNK
  8. CRESTOR [Concomitant]
     Active Substance: ROSUVASTATIN CALCIUM
     Dosage: UNK
  9. CELEBREX [Concomitant]
     Active Substance: CELECOXIB
     Dosage: UNK
  10. LEXAPRO [Concomitant]
     Active Substance: ESCITALOPRAM OXALATE
     Dosage: UNK
  11. LEVOTHYROXINE [Concomitant]
     Active Substance: LEVOTHYROXINE
     Dosage: UNK
  12. HYDROCHLOROTHIAZIDE\LOSARTAN [Concomitant]
     Active Substance: HYDROCHLOROTHIAZIDE\LOSARTAN
     Dosage: UNK

REACTIONS (3)
  - Pruritus [Not Recovered/Not Resolved]
  - Rash [Not Recovered/Not Resolved]
  - Injection site pain [Not Recovered/Not Resolved]

NARRATIVE: CASE EVENT DATE: 20230101
